FAERS Safety Report 4920175-5 (Version None)
Quarter: 2006Q1

REPORT INFORMATION
  Report Type: 
  Country: None (occurrence: None)
  Receive Date: 20060217
  Receipt Date: 20060127
  Transmission Date: 20060701
  Serious: Yes (Hospitalization)
  Sender: FDA-Public Use
  Company Number: HU200602002662

PATIENT
  Age: 52 Year
  Sex: Female

DRUGS (4)
  1. PEMETREXED(PEMETREXED) VIAL [Suspect]
     Indication: NON-SMALL CELL LUNG CANCER
     Dosage: 675 MG, OTHER, INTRAVENOUS ; 330 MG, OTHER INTRVAVENOUS
     Route: 042
     Dates: start: 20051018, end: 20051108
  2. PEMETREXED(PEMETREXED) VIAL [Suspect]
     Indication: NON-SMALL CELL LUNG CANCER
     Dosage: 675 MG, OTHER, INTRAVENOUS ; 330 MG, OTHER INTRVAVENOUS
     Route: 042
     Dates: start: 20051108
  3. CISPLATIN [Suspect]
     Dosage: 100 MG, OTHER, INTRAVENOUS ; 49 MG, OTHER, INTRAVENOUS
     Route: 042
     Dates: start: 20051018, end: 20051108
  4. CISPLATIN [Suspect]
     Dosage: 100 MG, OTHER, INTRAVENOUS ; 49 MG, OTHER, INTRAVENOUS
     Route: 042
     Dates: start: 20051108

REACTIONS (1)
  - POST THROMBOTIC SYNDROME [None]
